FAERS Safety Report 19187860 (Version 2)
Quarter: 2021Q2

REPORT INFORMATION
  Report Type: Spontaneous
  Country: US (occurrence: US)
  Receive Date: 20210428
  Receipt Date: 20210625
  Transmission Date: 20210717
  Serious: No
  Sender: FDA-Public Use
  Company Number: US-ASTRAZENECA-2021A326654

PATIENT
  Sex: Male
  Weight: 181.4 kg

DRUGS (3)
  1. BYDUREON [Suspect]
     Active Substance: EXENATIDE
     Indication: TYPE 2 DIABETES MELLITUS
     Route: 065
     Dates: start: 202012
  2. CHOLESTEROL [Concomitant]
     Active Substance: CHOLESTEROL
  3. IBUPROFEN. [Concomitant]
     Active Substance: IBUPROFEN
     Indication: BACK PAIN

REACTIONS (3)
  - Injection site pain [Unknown]
  - Wrong technique in product usage process [Unknown]
  - Device leakage [Unknown]
